FAERS Safety Report 17859924 (Version 2)
Quarter: 2020Q3

REPORT INFORMATION
  Report Type: Spontaneous
  Country: US (occurrence: US)
  Receive Date: 20200604
  Receipt Date: 20200925
  Transmission Date: 20201103
  Serious: Yes (Other)
  Sender: FDA-Public Use
  Company Number: US-RECORDATI RARE DISEASES-2085444

PATIENT
  Age: 34 Year
  Sex: Male

DRUGS (1)
  1. SIGNIFOR LAR [Suspect]
     Active Substance: PASIREOTIDE PAMOATE
     Indication: ACROMEGALY
     Dates: start: 2005

REACTIONS (4)
  - Abdominal distension [Recovered/Resolved]
  - Injection site pain [Recovered/Resolved]
  - Testis cancer [Recovered/Resolved]
  - Diarrhoea [Recovered/Resolved]
